FAERS Safety Report 11599583 (Version 4)
Quarter: 2018Q2

REPORT INFORMATION
  Report Type: Report from Study
  Country: TW (occurrence: TW)
  Receive Date: 20151006
  Receipt Date: 20180530
  Transmission Date: 20180711
  Serious: No
  Sender: FDA-Public Use
  Company Number: PHHY2014TW037706

PATIENT
  Age: 25 Year
  Sex: Male

DRUGS (4)
  1. TASIGNA [Suspect]
     Active Substance: NILOTINIB
     Indication: CHRONIC MYELOID LEUKAEMIA
     Dosage: 600 MG, UNK
     Route: 048
     Dates: start: 20130126, end: 20130218
  2. ULTRACET [Concomitant]
     Active Substance: ACETAMINOPHEN\TRAMADOL HYDROCHLORIDE
     Indication: PROPHYLAXIS
     Dosage: 1 DF, UNK
     Route: 048
     Dates: start: 20130724, end: 20130724
  3. TASIGNA [Suspect]
     Active Substance: NILOTINIB
     Dosage: 600 MG, UNK
     Route: 048
     Dates: start: 20130304
  4. HYDROXYUREA. [Concomitant]
     Active Substance: HYDROXYUREA
     Indication: PROPHYLAXIS
     Dosage: 500 MG, UNK
     Route: 048
     Dates: start: 20130722

REACTIONS (3)
  - White blood cell count decreased [Recovered/Resolved]
  - Platelet count decreased [Recovered/Resolved]
  - Anaemia [Recovered/Resolved]

NARRATIVE: CASE EVENT DATE: 20130218
